FAERS Safety Report 24754261 (Version 1)
Quarter: 2024Q4

REPORT INFORMATION
  Report Type: Spontaneous
  Country: CN (occurrence: CN)
  Receive Date: 20241219
  Receipt Date: 20241219
  Transmission Date: 20250114
  Serious: Yes (Hospitalization)
  Sender: EISAI
  Company Number: CN-Eisai-EC-2024-180750

PATIENT
  Age: 68 Year
  Sex: Male
  Weight: 50 kg

DRUGS (2)
  1. LENVATINIB [Suspect]
     Active Substance: LENVATINIB
     Indication: Bile duct cancer
     Route: 048
     Dates: start: 20241120, end: 20241130
  2. TORIPALIMAB [Concomitant]
     Active Substance: TORIPALIMAB
     Indication: Bile duct cancer
     Route: 042
     Dates: start: 20221209

REACTIONS (2)
  - Drug eruption [Recovering/Resolving]
  - Pyrexia [Recovering/Resolving]

NARRATIVE: CASE EVENT DATE: 20241130
